FAERS Safety Report 12466719 (Version 1)
Quarter: 2016Q2

REPORT INFORMATION
  Report Type: Spontaneous
  Country: US (occurrence: US)
  Receive Date: 20160615
  Receipt Date: 20160615
  Transmission Date: 20160815
  Serious: Yes (Hospitalization, Other)
  Sender: FDA-Public Use
  Company Number: US-ACCORD-041416

PATIENT
  Age: 64 Year
  Sex: Female

DRUGS (4)
  1. CYCLOPHOSPHAMIDE/CYCLOPHOSPHAMIDE MONOHYDRATE [Suspect]
     Active Substance: CYCLOPHOSPHAMIDE
     Indication: UTERINE CANCER
     Dosage: 1 ST AND 2 ND CYCLE
  2. ETOPOSIDE. [Suspect]
     Active Substance: ETOPOSIDE
     Indication: UTERINE CANCER
     Dosage: 1 ST AND 2 ND CYCLE
  3. DACTINOMYCIN [Suspect]
     Active Substance: DACTINOMYCIN
     Indication: UTERINE CANCER
     Dosage: 1 ST AND 2 ND CYCLE
  4. VINCRISTINE [Suspect]
     Active Substance: VINCRISTINE
     Indication: UTERINE CANCER
     Dosage: 1 ST AND 2 ND CYCLE

REACTIONS (6)
  - Disseminated cryptococcosis [Recovered/Resolved]
  - Sepsis [Recovered/Resolved]
  - Off label use [Unknown]
  - Urinary tract infection [Recovered/Resolved]
  - Klebsiella infection [Recovered/Resolved]
  - Febrile neutropenia [Recovered/Resolved]
